FAERS Safety Report 6273941-0 (Version None)
Quarter: 2009Q3

REPORT INFORMATION
  Report Type: 
  Country: None (occurrence: None)
  Receive Date: 20090720
  Receipt Date: 20090709
  Transmission Date: 20100115
  Serious: Yes (Other)
  Sender: FDA-Public Use
  Company Number: US-MERCK-0907USA02320

PATIENT
  Age: 11 Year
  Sex: Female

DRUGS (1)
  1. HYDROCORTISONE 10MG TAB [Suspect]
     Route: 048

REACTIONS (4)
  - ABNORMAL BEHAVIOUR [None]
  - MENTAL DISORDER [None]
  - PSYCHOTIC DISORDER [None]
  - SUICIDAL IDEATION [None]
